FAERS Safety Report 21793159 (Version 1)
Quarter: 2022Q4

REPORT INFORMATION
  Report Type: Spontaneous
  Country: RS (occurrence: RS)
  Receive Date: 20221229
  Receipt Date: 20221229
  Transmission Date: 20230112
  Serious: Yes (Other)
  Sender: FDA-Public Use
  Company Number: RS-TEVA-2022-RS-2840192

PATIENT
  Age: 28 Year
  Sex: Female

DRUGS (1)
  1. COPAXONE [Suspect]
     Active Substance: GLATIRAMER ACETATE
     Indication: Multiple sclerosis
     Dosage: 40MG/ML
     Route: 058
     Dates: start: 202110, end: 20221213

REACTIONS (5)
  - Rash morbilliform [Recovered/Resolved]
  - Paraesthesia [Recovered/Resolved]
  - Skin plaque [Recovering/Resolving]
  - Blood pressure increased [Recovered/Resolved]
  - Hyperglycaemia [Recovered/Resolved]

NARRATIVE: CASE EVENT DATE: 20221213
